FAERS Safety Report 7420299-7 (Version None)
Quarter: 2011Q2

REPORT INFORMATION
  Report Type: 
  Country: None (occurrence: None)
  Receive Date: 20110406
  Receipt Date: 20110323
  Transmission Date: 20111010
  Serious: Yes (Hospitalization, Other)
  Sender: FDA-Public Use
  Company Number: 023884

PATIENT
  Sex: Female
  Weight: 44 kg

DRUGS (5)
  1. AXURA (AXURA) (NOT SPECIFIED) [Suspect]
     Indication: DEMENTIA
     Dosage: 5 MG QD
     Dates: start: 20101005, end: 20101126
  2. NEUPRO [Suspect]
     Indication: DEMENTIA
     Dosage: 2 MG QD TRANSDERMAL, 4 MG QD TRANSDERMAL
     Route: 062
     Dates: start: 20090915, end: 20090901
  3. NEUPRO [Suspect]
     Indication: DEMENTIA
     Dosage: 2 MG QD TRANSDERMAL, 4 MG QD TRANSDERMAL
     Route: 062
     Dates: start: 20090923
  4. ARICEPT [Suspect]
     Indication: DEMENTIA
     Dosage: 5 MG QD, 10 MG QD
     Dates: start: 20100416, end: 20100503
  5. ARICEPT [Suspect]
     Indication: DEMENTIA
     Dosage: 5 MG QD, 10 MG QD
     Dates: start: 20100504, end: 20101004

REACTIONS (1)
  - CONFUSIONAL STATE [None]
